FAERS Safety Report 5835301-3 (Version None)
Quarter: 2008Q3

REPORT INFORMATION
  Report Type: 
  Country: None (occurrence: None)
  Receive Date: 20080806
  Receipt Date: 20080722
  Transmission Date: 20090109
  Serious: Yes (Other)
  Sender: FDA-Public Use
  Company Number: US-BAYER-200827592NA

PATIENT
  Age: 43 Year
  Sex: Female

DRUGS (2)
  1. BETASERON [Suspect]
     Indication: MULTIPLE SCLEROSIS
     Dosage: TOTAL DAILY DOSE: 1 MIU
     Route: 058
     Dates: start: 20080501
  2. GABAPENTIN [Concomitant]

REACTIONS (3)
  - MULTIPLE SCLEROSIS [None]
  - STRESS [None]
  - SUICIDAL IDEATION [None]
